FAERS Safety Report 7757810-2 (Version None)
Quarter: 2011Q3

REPORT INFORMATION
  Report Type: 
  Country: None (occurrence: None)
  Receive Date: 20110918
  Receipt Date: 20110907
  Transmission Date: 20111222
  Serious: Yes (Other)
  Sender: FDA-Public Use
  Company Number: US-ASTRAZENECA-2011SE38444

PATIENT
  Age: 59 Year
  Sex: Female

DRUGS (18)
  1. NORVASC [Suspect]
     Route: 065
  2. IBUPROFEN [Concomitant]
     Route: 048
  3. TOPROL-XL [Suspect]
     Route: 048
  4. CRESTOR [Suspect]
     Route: 048
  5. PLAVIX [Concomitant]
     Route: 048
  6. NAPROXEN (ALEVE) [Concomitant]
     Route: 048
  7. METOPROLOL TARTRATE [Concomitant]
     Route: 048
  8. KLONOPIN [Concomitant]
     Route: 048
  9. LISINOPRIL AND HYDROCHLOROTHIAZIDE [Concomitant]
     Dosage: 10/12.5 MG QD
     Route: 048
  10. ATACAND [Suspect]
     Route: 048
  11. LISINOPRIL [Suspect]
     Route: 048
  12. ASPIRIN [Concomitant]
     Route: 048
  13. PRINZIDE [Concomitant]
     Dosage: 20 MG- 12.5 MG AS DIRECTED
     Route: 048
  14. IBUPROFEN [Concomitant]
     Dosage: PRN
     Route: 048
  15. LEVOTHYROXINE SODIUM [Concomitant]
     Route: 048
  16. ASPIRIN [Concomitant]
     Route: 048
  17. SIMVASTATIN [Concomitant]
     Route: 048
  18. CLONAZEPAM [Concomitant]
     Route: 048

REACTIONS (13)
  - TRANSIENT ISCHAEMIC ATTACK [None]
  - CEREBROVASCULAR ACCIDENT [None]
  - CHONDROPATHY [None]
  - DRUG HYPERSENSITIVITY [None]
  - MYALGIA [None]
  - BONE DISORDER [None]
  - BLOOD PRESSURE DECREASED [None]
  - CAROTID ARTERY STENOSIS [None]
  - HYPOTHYROIDISM [None]
  - METABOLIC SYNDROME [None]
  - PERIPHERAL VASCULAR DISORDER [None]
  - ESSENTIAL HYPERTENSION [None]
  - ILL-DEFINED DISORDER [None]
